FAERS Safety Report 12214293 (Version 1)
Quarter: 2016Q1

REPORT INFORMATION
  Report Type: Spontaneous
  Country: US (occurrence: US)
  Receive Date: 20160328
  Receipt Date: 20160328
  Transmission Date: 20160526
  Serious: Yes (Life-Threatening)
  Sender: FDA-Public Use
  Company Number: US-SA-2016SA061492

PATIENT
  Age: 61 Year
  Sex: Female

DRUGS (1)
  1. AUBAGIO [Suspect]
     Active Substance: TERIFLUNOMIDE
     Indication: MULTIPLE SCLEROSIS
     Route: 048
     Dates: start: 20150623

REACTIONS (5)
  - Ocular icterus [Unknown]
  - Pain [Unknown]
  - Hepatic cirrhosis [Unknown]
  - Nausea [Unknown]
  - Chromaturia [Unknown]

NARRATIVE: CASE EVENT DATE: 20160316
